FAERS Safety Report 19754417 (Version 1)
Quarter: 2021Q3

REPORT INFORMATION
  Report Type: Spontaneous
  Country: US (occurrence: US)
  Receive Date: 20210825
  Receipt Date: 20210825
  Transmission Date: 20211014
  Serious: Yes (Hospitalization)
  Sender: FDA-Public Use
  Company Number: None

PATIENT
  Sex: Male
  Weight: 92 kg

DRUGS (2)
  1. CYTARABINE. [Suspect]
     Active Substance: CYTARABINE
  2. RITUXIMAB (MOAB C2B8 ANTI CD20, CHIMERIC) [Concomitant]
     Active Substance: RITUXIMAB

REACTIONS (8)
  - Decreased appetite [None]
  - Staphylococcal bacteraemia [None]
  - Infection in an immunocompromised host [None]
  - Febrile neutropenia [None]
  - Pulmonary mass [None]
  - Pleuritic pain [None]
  - Body temperature increased [None]
  - Fatigue [None]

NARRATIVE: CASE EVENT DATE: 20210606
